FAERS Safety Report 15156428 (Version 2)
Quarter: 2018Q3

REPORT INFORMATION
  Report Type: Report from Study
  Country: None (occurrence: FR)
  Receive Date: 20180717
  Receipt Date: 20180719
  Transmission Date: 20181010
  Serious: Yes (Hospitalization, Other)
  Sender: FDA-Public Use
  Company Number: FR-ABBVIE-14P-056-1314172-00

PATIENT
  Age: 69 Year
  Sex: Male
  Weight: 58.1 kg

DRUGS (39)
  1. VENETOCLAX. [Suspect]
     Active Substance: VENETOCLAX
     Indication: NON-HODGKIN^S LYMPHOMA
     Dosage: INITIAL DOSE 200?800MG PER PROTOCOL.MOST RECENT DOSE(200MG) 25NOV14
     Route: 048
     Dates: start: 20141030
  2. TEMESTA [Concomitant]
     Indication: DEPRESSION
     Dates: start: 20141027
  3. SODIUM BICARBONATE. [Concomitant]
     Active Substance: SODIUM BICARBONATE
     Indication: INFECTION PROPHYLAXIS
     Dates: start: 20141028
  4. TRAMADOL. [Concomitant]
     Active Substance: TRAMADOL
     Indication: PAIN IN JAW
     Dates: start: 20141011
  5. AMLOR [Concomitant]
     Active Substance: AMLODIPINE BESYLATE
     Indication: HYPERTENSION
     Dates: start: 20141126, end: 20141204
  6. CRESTOR [Concomitant]
     Active Substance: ROSUVASTATIN CALCIUM
     Indication: ATRIAL FIBRILLATION
     Dates: start: 20141201
  7. LASILIX [Concomitant]
     Active Substance: FUROSEMIDE
     Indication: PROPHYLAXIS
     Dates: start: 20141202
  8. FORLAX (MACROLGOL 4000) [Concomitant]
     Indication: CONSTIPATION
     Dates: start: 20141103
  9. LASILIX [Concomitant]
     Active Substance: FUROSEMIDE
     Indication: FLUID OVERLOAD
  10. LOVENOX [Concomitant]
     Active Substance: ENOXAPARIN SODIUM
     Indication: ATRIAL FIBRILLATION
     Dates: start: 20141201
  11. HEXTRIL [Concomitant]
     Active Substance: HEXETIDINE
     Dates: start: 20141028
  12. PARACETAMOL [Concomitant]
     Active Substance: ACETAMINOPHEN
     Indication: PREMEDICATION
     Dates: start: 20141027, end: 20141110
  13. VENOFER [Concomitant]
     Active Substance: IRON SUCROSE
     Indication: PROPHYLAXIS
  14. DOXORUBICIN [Suspect]
     Active Substance: DOXORUBICIN
     Indication: NON-HODGKIN^S LYMPHOMA
     Dosage: LAST DOSE(80MG) PRIOR TO EVENT ON 17NOV14 AT 16.35
     Route: 042
     Dates: start: 20141027
  15. KARDEGIC [Concomitant]
     Active Substance: ASPIRIN DL-LYSINE
     Indication: PERIPHERAL ARTERIAL OCCLUSIVE DISEASE
  16. GRANOCYTE [Concomitant]
     Active Substance: LENOGRASTIM
     Indication: PROPHYLAXIS
     Dates: start: 20141101, end: 20141106
  17. NORADRENALIN [Concomitant]
     Active Substance: NOREPINEPHRINE\NOREPINEPHRINE BITARTRATE
     Indication: URINE OUTPUT DECREASED
     Dates: start: 20141126, end: 20141129
  18. GA101 [Suspect]
     Active Substance: OBINUTUZUMAB
     Indication: NON-HODGKIN^S LYMPHOMA
     Dosage: LAST DOSE PRIOR TO EVENT ON 17NOV14  AT 13.03
     Route: 042
     Dates: start: 20141027
  19. SPIRIVA [Concomitant]
     Active Substance: TIOTROPIUM BROMIDE MONOHYDRATE
     Indication: CHRONIC OBSTRUCTIVE PULMONARY DISEASE
     Dates: start: 2012
  20. ALLOPURINOL. [Concomitant]
     Active Substance: ALLOPURINOL
     Indication: PROPHYLAXIS
     Dates: start: 20141027, end: 20141102
  21. GRANOCYTE [Concomitant]
     Active Substance: LENOGRASTIM
     Indication: PROPHYLAXIS
     Dates: start: 20141122, end: 20141129
  22. NEORECORMON [Concomitant]
     Active Substance: ERYTHROPOIETIN
     Indication: ANAEMIA
     Dates: start: 20141117, end: 2015
  23. APROVEL [Concomitant]
     Active Substance: IRBESARTAN
     Dates: start: 20141204
  24. KARDEGIC [Concomitant]
     Active Substance: ASPIRIN DL-LYSINE
     Indication: PERIPHERAL ARTERIAL OCCLUSIVE DISEASE
     Dates: start: 2009
  25. RED BLOOD CELLS [Concomitant]
     Active Substance: HUMAN RED BLOOD CELL
     Indication: ANAEMIA
     Dates: start: 20141126, end: 20141126
  26. POLARAMINE [Concomitant]
     Active Substance: DEXCHLORPHENIRAMINE MALEATE
     Indication: PREMEDICATION
     Dates: start: 20141027, end: 20141110
  27. ATARAX [Concomitant]
     Active Substance: HYDROXYZINE HYDROCHLORIDE
     Indication: DEPRESSION
     Dates: start: 20141130, end: 20141202
  28. EUPANTOL [Concomitant]
     Active Substance: PANTOPRAZOLE SODIUM
     Indication: GASTROOESOPHAGEAL REFLUX PROPHYLAXIS
     Dates: start: 20141201
  29. CYCLOPHOSPHAMIDE. [Suspect]
     Active Substance: CYCLOPHOSPHAMIDE
     Indication: NON-HODGKIN^S LYMPHOMA
     Dosage: LAST DOSE(1200MG) PRIOR TO EVENT ON 17NOV14, AT 17.00
     Route: 042
     Dates: start: 20141027
  30. VINCRISTINE [Suspect]
     Active Substance: VINCRISTINE
     Indication: NON-HODGKIN^S LYMPHOMA
     Dosage: LAST DOSE (2MG) PRIOR TO EVENT AT 17.30
     Route: 042
     Dates: start: 20141027
  31. PREDNISONE. [Suspect]
     Active Substance: PREDNISONE
     Indication: NON-HODGKIN^S LYMPHOMA
     Dosage: LAST DOSE PRIOR TO EVENT ON 21NOV14
     Route: 048
     Dates: start: 20141027
  32. LOVENOX [Concomitant]
     Active Substance: ENOXAPARIN SODIUM
     Indication: THROMBOSIS PROPHYLAXIS
     Dates: start: 20141027, end: 20141027
  33. PRIMPERAN [Concomitant]
     Active Substance: METOCLOPRAMIDE HYDROCHLORIDE
     Indication: VOMITING
     Dates: start: 20141027, end: 20141027
  34. HEXTRIL [Concomitant]
     Active Substance: HEXETIDINE
     Indication: INFECTION PROPHYLAXIS
     Dates: start: 20141103
  35. XANAX [Concomitant]
     Active Substance: ALPRAZOLAM
     Indication: DEPRESSION
  36. PLITICAN [Concomitant]
     Active Substance: ALIZAPRIDE HYDROCHLORIDE
     Indication: NAUSEA
     Dates: start: 20141126, end: 20141126
  37. VENOFER [Concomitant]
     Active Substance: IRON SUCROSE
     Indication: IRON DEFICIENCY
     Dates: start: 20141201
  38. APROVEL [Concomitant]
     Active Substance: IRBESARTAN
     Indication: HYPERTENSION
     Dates: start: 2009, end: 20141126
  39. LASILIX [Concomitant]
     Active Substance: FUROSEMIDE
     Indication: FLUID OVERLOAD

REACTIONS (3)
  - Infection [Recovered/Resolved]
  - Neutropenia [Recovered/Resolved]
  - Acute coronary syndrome [Recovered/Resolved]

NARRATIVE: CASE EVENT DATE: 20141126
